FAERS Safety Report 25604106 (Version 1)
Quarter: 2025Q3

REPORT INFORMATION
  Report Type: Spontaneous
  Country: VN (occurrence: VN)
  Receive Date: 20250725
  Receipt Date: 20250725
  Transmission Date: 20251021
  Serious: Yes (Other)
  Sender: BOEHRINGER INGELHEIM
  Company Number: VN-BoehringerIngelheim-2025-BI-083933

PATIENT
  Age: 58 Year
  Sex: Female

DRUGS (3)
  1. AFATINIB [Suspect]
     Active Substance: AFATINIB
     Indication: EGFR gene mutation
     Dates: start: 2020
  2. AFATINIB [Suspect]
     Active Substance: AFATINIB
     Indication: Anaplastic lymphoma kinase gene mutation
  3. AFATINIB [Suspect]
     Active Substance: AFATINIB
     Indication: Non-small cell lung cancer

REACTIONS (6)
  - Malignant neoplasm progression [Recovered/Resolved]
  - Pneumothorax [Unknown]
  - Pleural effusion [Recovering/Resolving]
  - Chest wall mass [Unknown]
  - Pericardial effusion [Unknown]
  - Diarrhoea [Unknown]

NARRATIVE: CASE EVENT DATE: 20201201
